FAERS Safety Report 4718353-3 (Version None)
Quarter: 2005Q3

REPORT INFORMATION
  Report Type: 
  Country: None (occurrence: None)
  Receive Date: 20050718
  Receipt Date: 20040716
  Transmission Date: 20060218
  Serious: Yes (Other)
  Sender: FDA-Public Use
  Company Number: 238172

PATIENT
  Sex: Female

DRUGS (6)
  1. ACTIVELLA (NORESTHISTERONE ACETATE, ESTRADIOL HEMIHYDRATE) FILM-COATED [Suspect]
     Indication: HORMONE REPLACEMENT THERAPY
     Dosage: ORAL
     Route: 048
  2. PREMPRO [Concomitant]
  3. PREMARIN/NEZ/(ESTSROGENS CONJUGATED) [Concomitant]
  4. PROVERA [Concomitant]
  5. MEDROXYPROGESTERONE ACETATE [Concomitant]
  6. ESTROGEN NOS (ESTROGEN NOS) TABLET [Concomitant]

REACTIONS (1)
  - BREAST CANCER [None]
